FAERS Safety Report 9611797 (Version 1)
Quarter: 2013Q4

REPORT INFORMATION
  Report Type: Spontaneous
  Country: GB (occurrence: GB)
  Receive Date: 20131010
  Receipt Date: 20131010
  Transmission Date: 20140711
  Serious: Yes (Hospitalization, Other)
  Sender: FDA-Public Use
  Company Number: GB-ASTRAZENECA-2013SE73517

PATIENT
  Age: 68 Year
  Sex: Female
  Weight: 79.4 kg

DRUGS (17)
  1. OMEPRAZOLE [Suspect]
     Indication: HIATUS HERNIA
     Route: 048
  2. OMEPRAZOLE [Suspect]
     Indication: HIATUS HERNIA
     Route: 048
  3. LANSOPRAZOLE [Suspect]
     Indication: FAECES DISCOLOURED
     Route: 048
     Dates: start: 20130314, end: 20130322
  4. LANSOPRAZOLE [Suspect]
     Indication: GASTRITIS EROSIVE
     Route: 048
     Dates: start: 20130314, end: 20130322
  5. LANSOPRAZOLE [Suspect]
     Indication: FAECES DISCOLOURED
     Route: 048
     Dates: start: 20110205
  6. LANSOPRAZOLE [Suspect]
     Indication: GASTRITIS EROSIVE
     Route: 048
     Dates: start: 20110205
  7. PIMOZIDE [Suspect]
  8. CISAPRIDE [Concomitant]
  9. COD LIVER OIL [Concomitant]
  10. COPPER [Concomitant]
  11. CYNOMEL [Concomitant]
  12. ERYTHROMYCIN [Concomitant]
     Indication: LOWER RESPIRATORY TRACT INFECTION
  13. PREDNISOLONE [Concomitant]
  14. TRIPHALA [Concomitant]
  15. VITAMIN D2 [Concomitant]
  16. VITAMIN K [Concomitant]
  17. ZINC [Concomitant]

REACTIONS (14)
  - Breast cancer [Unknown]
  - Electrolyte imbalance [Unknown]
  - Feeling hot [Unknown]
  - Presyncope [Unknown]
  - Pain [Not Recovered/Not Resolved]
  - Urinary tract infection [Unknown]
  - Weight increased [Unknown]
  - Diarrhoea [Not Recovered/Not Resolved]
  - General physical health deterioration [Unknown]
  - Lower respiratory tract infection [Unknown]
  - Aphagia [Unknown]
  - Faeces discoloured [Unknown]
  - Abdominal discomfort [Unknown]
  - Intentional drug misuse [Unknown]
